FAERS Safety Report 24734145 (Version 1)
Quarter: 2024Q4

REPORT INFORMATION
  Report Type: Spontaneous
  Country: US (occurrence: US)
  Receive Date: 20241214
  Receipt Date: 20241214
  Transmission Date: 20250115
  Serious: No
  Sender: ALKEM
  Company Number: US-ALKEM LABORATORIES LIMITED-US-ALKEM-2024-08463

PATIENT
  Age: 12 Month
  Sex: Female

DRUGS (5)
  1. MYCOPHENOLATE MOFETIL [Suspect]
     Active Substance: MYCOPHENOLATE MOFETIL
     Indication: Opsoclonus myoclonus
     Dosage: 300 MILLIGRAM/SQ. METER, BID
     Route: 048
  2. TACROLIMUS [Suspect]
     Active Substance: TACROLIMUS
     Indication: Opsoclonus myoclonus
     Dosage: UNK (PARENTAL)
     Route: 065
  3. CYCLOPHOSPHAMIDE [Concomitant]
     Active Substance: CYCLOPHOSPHAMIDE
     Indication: Opsoclonus myoclonus
     Dosage: 25 MILLIGRAM/KILOGRAM (EVERY 3 WEEKS, 3 DOSES)
     Route: 042
  4. RITUXIMAB [Concomitant]
     Active Substance: RITUXIMAB
     Indication: Opsoclonus myoclonus
     Dosage: 375 MILLIGRAM/SQ. METER, ONCE WEEKLY, 4 DOSES
     Route: 042
  5. RITUXIMAB [Concomitant]
     Active Substance: RITUXIMAB
     Dosage: 375 MILLIGRAM/SQ. METER, EVERY 3 WEEKS, 4 CYCLES
     Route: 042

REACTIONS (1)
  - Treatment noncompliance [Unknown]
